FAERS Safety Report 7428417-1 (Version None)
Quarter: 2011Q2

REPORT INFORMATION
  Report Type: 
  Country: None (occurrence: None)
  Receive Date: 20110421
  Receipt Date: 20110408
  Transmission Date: 20111010
  Serious: Yes (Hospitalization)
  Sender: FDA-Public Use
  Company Number: PHHY2011US23034

PATIENT
  Age: 44 Year
  Sex: Female

DRUGS (3)
  1. TOPAMAX [Concomitant]
     Dosage: UNK
     Route: 048
  2. CURADERM [Concomitant]
     Dosage: UNK
     Route: 048
  3. RECLAST [Suspect]
     Indication: OSTEOPOROSIS
     Dosage: 5 MG, UNK
     Route: 042
     Dates: start: 20110121

REACTIONS (5)
  - ANAPHYLACTIC REACTION [None]
  - PAIN [None]
  - DYSPNOEA [None]
  - BEDRIDDEN [None]
  - SWOLLEN TONGUE [None]
